FAERS Safety Report 8364575-2 (Version None)
Quarter: 2012Q2

REPORT INFORMATION
  Report Type: 
  Country: None (occurrence: None)
  Receive Date: 20120516
  Receipt Date: 20120504
  Transmission Date: 20120825
  Serious: Yes (Other)
  Sender: FDA-Public Use
  Company Number: US-JNJFOC-2005165032

PATIENT
  Age: 22 Year
  Sex: Male

DRUGS (3)
  1. IBUPROFEN [Suspect]
     Indication: ILL-DEFINED DISORDER
     Dosage: FREQUENCY TEXT: UNKNOWN
     Route: 065
  2. ACETAMINOPHEN [Interacting]
     Indication: ILL-DEFINED DISORDER
     Dosage: FREQUENCY TEXT: UNKNOWN
     Route: 048
  3. PHENYTOIN [Interacting]
     Indication: CONVULSION
     Dosage: FREQUENCY TEXT: UNKNOWN
     Route: 065

REACTIONS (8)
  - RENAL FAILURE ACUTE [None]
  - DRUG INTERACTION [None]
  - INTENTIONAL OVERDOSE [None]
  - TOXICITY TO VARIOUS AGENTS [None]
  - HEPATIC ENCEPHALOPATHY [None]
  - ANTICONVULSANT DRUG LEVEL INCREASED [None]
  - SUICIDE ATTEMPT [None]
  - HEPATIC NECROSIS [None]
